FAERS Safety Report 11501373 (Version 1)
Quarter: 2015Q3

REPORT INFORMATION
  Report Type: Report from Study
  Country: US (occurrence: US)
  Receive Date: 20150914
  Receipt Date: 20150914
  Transmission Date: 20151125
  Serious: No
  Sender: FDA-Public Use
  Company Number: PHEH2015US017795

PATIENT
  Sex: Male

DRUGS (2)
  1. TOBI PODHALER [Suspect]
     Active Substance: TOBRAMYCIN
     Indication: PRODUCT USED FOR UNKNOWN INDICATION
     Dosage: 4 DF (CAPSULE), BID (ALTERNATE 28 DAYS ON AND 28 DAYS OFF)
     Route: 055
  2. TOBI PODHALER [Suspect]
     Active Substance: TOBRAMYCIN
     Dosage: 4 DF (CAPSULE), BID (ALTERNATE 28 DAYS ON AND 28 DAYS OFF)
     Route: 065
     Dates: start: 20150909

REACTIONS (1)
  - Dysphonia [Unknown]
